FAERS Safety Report 15481749 (Version 1)
Quarter: 2018Q4

REPORT INFORMATION
  Report Type: Spontaneous
  Country: CA (occurrence: CA)
  Receive Date: 20181010
  Receipt Date: 20181010
  Transmission Date: 20190205
  Serious: Yes (Other)
  Sender: FDA-Public Use
  Company Number: CA-009507513-1412CAN002259

PATIENT
  Age: 19 Year
  Sex: Female

DRUGS (15)
  1. INTELENCE [Suspect]
     Active Substance: ETRAVIRINE
     Dosage: 200 MG, BID
  2. LAMIVUDINE. [Suspect]
     Active Substance: LAMIVUDINE
     Dosage: 150 MG, 2X/DAY
  3. ISENTRESS [Suspect]
     Active Substance: RALTEGRAVIR POTASSIUM
     Dosage: 400 MG, 2X/DAY
     Route: 048
  4. BACTRIM [Suspect]
     Active Substance: SULFAMETHOXAZOLE\TRIMETHOPRIM
     Dosage: 400 MG, BID
  5. TENOFOVIR [Suspect]
     Active Substance: TENOFOVIR
     Dosage: 300 MG, 1X/DAY
  6. MAGNESIUM GLUCONATE [Concomitant]
     Active Substance: MAGNESIUM GLUCONATE
     Dosage: UNK
     Route: 048
  7. VITAMINS (UNSPECIFIED) [Concomitant]
     Active Substance: VITAMINS
     Route: 048
  8. RITONAVIR. [Suspect]
     Active Substance: RITONAVIR
     Dosage: 100 MG, 2X/DAY
  9. ABACAVIR. [Suspect]
     Active Substance: ABACAVIR
     Dosage: 300 MG, 2X/DAY
  10. AZITHROMYCIN ANHYDROUS. [Suspect]
     Active Substance: AZITHROMYCIN ANHYDROUS
     Dosage: 2 DF, QD
  11. IRON (UNSPECIFIED) [Concomitant]
     Active Substance: IRON
     Dosage: UNK
  12. PREZISTA [Suspect]
     Active Substance: DARUNAVIR ETHANOLATE
     Dosage: 600 MG, 2X/DAY
     Route: 048
  13. ZIDOVUDINE. [Suspect]
     Active Substance: ZIDOVUDINE
     Dosage: 300 MG, 2X/DAY
  14. ACYCLOVIR. [Suspect]
     Active Substance: ACYCLOVIR
     Dosage: UNK
  15. FOLIC ACID. [Concomitant]
     Active Substance: FOLIC ACID
     Dosage: UNK

REACTIONS (1)
  - Maternal exposure during pregnancy [Recovered/Resolved]
